FAERS Safety Report 24634068 (Version 1)
Quarter: 2024Q4

REPORT INFORMATION
  Report Type: Report from Study
  Country: DE (occurrence: DE)
  Receive Date: 20241119
  Receipt Date: 20241119
  Transmission Date: 20250114
  Serious: Yes (Hospitalization)
  Sender: ABBVIE
  Company Number: DE-ABBVIE-5983641

PATIENT
  Age: 77 Year
  Sex: Female

DRUGS (2)
  1. FOSCARBIDOPA\FOSLEVODOPA [Suspect]
     Active Substance: FOSCARBIDOPA\FOSLEVODOPA
     Indication: Parkinson^s disease
     Dosage: (SD: 0.60 ML), CRN: 0.30 ML/H, CR: 038 ML/H, CRH: 0.46 ML/H, ED: 0.15 ML, LAST DOSE ADMINISTERED:...
     Route: 058
     Dates: start: 20241008
  2. FOSCARBIDOPA\FOSLEVODOPA [Suspect]
     Active Substance: FOSCARBIDOPA\FOSLEVODOPA
     Dosage: SD: 0,60 ML, CRN: 0,30 ML/H, CR: 038 ML/H, CRH: 0,46 ML/H, ED: 0,15 ML
     Route: 058
     Dates: start: 2024

REACTIONS (3)
  - Infusion site abscess [Not Recovered/Not Resolved]
  - On and off phenomenon [Unknown]
  - On and off phenomenon [Recovering/Resolving]

NARRATIVE: CASE EVENT DATE: 20240101
